FAERS Safety Report 12707713 (Version 3)
Quarter: 2016Q4

REPORT INFORMATION
  Report Type: Spontaneous
  Country: US (occurrence: US)
  Receive Date: 20160901
  Receipt Date: 20161110
  Transmission Date: 20170207
  Serious: Yes (Other)
  Sender: FDA-Public Use
  Company Number: US-LEO PHARMA-243747

PATIENT
  Age: 42 Year
  Sex: Female

DRUGS (1)
  1. PICATO [Suspect]
     Active Substance: INGENOL MEBUTATE
     Indication: PRECANCEROUS SKIN LESION
     Route: 061
     Dates: start: 20160808, end: 20160809

REACTIONS (9)
  - Application site swelling [Recovered/Resolved]
  - Application site erythema [Recovering/Resolving]
  - Incorrect dose administered [Recovered/Resolved]
  - Application site acne [Recovering/Resolving]
  - Telangiectasia [Recovered/Resolved with Sequelae]
  - Drug administration error [Recovered/Resolved]
  - Application site scar [Not Recovered/Not Resolved]
  - Application site pustules [Recovered/Resolved]
  - Dermatitis acneiform [Recovered/Resolved with Sequelae]

NARRATIVE: CASE EVENT DATE: 20160808
